FAERS Safety Report 18548851 (Version 1)
Quarter: 2020Q4

REPORT INFORMATION
  Report Type: Report from Study
  Country: None (occurrence: BG)
  Receive Date: 20201126
  Receipt Date: 20201126
  Transmission Date: 20210114
  Serious: Yes (Death, Hospitalization)
  Sender: FDA-Public Use
  Company Number: BG-ABBVIE-20K-022-3665192-00

PATIENT
  Sex: Male

DRUGS (2)
  1. DUODOPA [Suspect]
     Active Substance: CARBIDOPA\LEVODOPA
     Indication: PARKINSON^S DISEASE
     Dosage: MD-9,0 ML CR-4,1 ML/H EX-1,0 ML
     Route: 050
     Dates: start: 20150310, end: 20201123
  2. DUODOPA [Suspect]
     Active Substance: CARBIDOPA\LEVODOPA

REACTIONS (11)
  - Pain [Unknown]
  - Pneumonia [Unknown]
  - Melaena [Unknown]
  - Enteritis [Not Recovered/Not Resolved]
  - Weight decreased [Unknown]
  - Colitis [Not Recovered/Not Resolved]
  - Cerebrovascular accident [Unknown]
  - Gastrointestinal pain [Unknown]
  - Suspected COVID-19 [Unknown]
  - Exposure to SARS-CoV-2 [Unknown]
  - Death [Fatal]

NARRATIVE: CASE EVENT DATE: 20200824
